FAERS Safety Report 23047694 (Version 4)
Quarter: 2024Q1

REPORT INFORMATION
  Report Type: Other
  Country: ZA (occurrence: None)
  Receive Date: 20231010
  Receipt Date: 20240321
  Transmission Date: 20240410
  Serious: Yes (Hospitalization)
  Sender: FDA-Public Use
  Company Number: ZA-ROCHE-3429921

PATIENT
  Sex: Male

DRUGS (1)
  1. OCREVUS [Suspect]
     Active Substance: OCRELIZUMAB
     Indication: Primary progressive multiple sclerosis
     Dosage: THEREAFTER 600MG EVERY 6 MONTHS
     Route: 041
     Dates: start: 20220920

REACTIONS (7)
  - Expanded disability status scale score increased [Unknown]
  - Gait disturbance [Unknown]
  - Magnetic resonance imaging spinal abnormal [Unknown]
  - General physical health deterioration [Unknown]
  - Back pain [Unknown]
  - Neurological decompensation [Unknown]
  - Pain in extremity [Unknown]
